FAERS Safety Report 18408036 (Version 2)
Quarter: 2020Q4

REPORT INFORMATION
  Report Type: Report from Study
  Country: US (occurrence: US)
  Receive Date: 20201021
  Receipt Date: 20201104
  Transmission Date: 20210114
  Serious: Yes (Death, Other)
  Sender: FDA-Public Use
  Company Number: US-UNITED THERAPEUTICS-UNT-2020-016161

PATIENT
  Age: 63 Year
  Sex: Male

DRUGS (2)
  1. TREPROSTINIL SODIUM (SQ) [Suspect]
     Active Substance: TREPROSTINIL SODIUM
     Indication: PULMONARY ARTERIAL HYPERTENSION
     Dosage: UNK, CONTINUING
     Route: 058
     Dates: start: 202010
  2. TREPROSTINIL SODIUM (SQ) [Suspect]
     Active Substance: TREPROSTINIL SODIUM
     Dosage: 0.020 ?G/KG, CONTINUING
     Route: 058
     Dates: start: 202010

REACTIONS (4)
  - Respiratory failure [Unknown]
  - Pulmonary veno-occlusive disease [Fatal]
  - Pulmonary oedema [Fatal]
  - Unintentional use for unapproved indication [Unknown]

NARRATIVE: CASE EVENT DATE: 202010
